FAERS Safety Report 14554985 (Version 1)
Quarter: 2018Q1

REPORT INFORMATION
  Report Type: Spontaneous
  Country: GB (occurrence: GB)
  Receive Date: 20180220
  Receipt Date: 20180220
  Transmission Date: 20180509
  Serious: Yes (Other)
  Sender: FDA-Public Use
  Company Number: GB-MYLANLABS-2018M1011826

PATIENT
  Age: 36 Year
  Sex: Female

DRUGS (6)
  1. LIGNOCAINE                         /00033401/ [Concomitant]
     Active Substance: LIDOCAINE HYDROCHLORIDE
     Indication: PRODUCT USED FOR UNKNOWN INDICATION
     Dosage: 20 ML
     Route: 008
  2. EPINEPHRINE. [Suspect]
     Active Substance: EPINEPHRINE
     Indication: PRODUCT USED FOR UNKNOWN INDICATION
     Dosage: 0.1ML OF 1:1000
     Route: 008
  3. ATROPINE. [Concomitant]
     Active Substance: ATROPINE
     Indication: BRADYCARDIA
     Dosage: 300 MICROGRAM
     Route: 065
  4. EPHEDRINE. [Suspect]
     Active Substance: EPHEDRINE
     Indication: BRADYCARDIA
     Dosage: 6 MG + 6 MG
     Route: 065
  5. EPHEDRINE. [Suspect]
     Active Substance: EPHEDRINE
     Indication: HYPOTENSION
  6. ATROPINE. [Concomitant]
     Active Substance: ATROPINE
     Indication: HYPOTENSION

REACTIONS (4)
  - Hypertension [Recovered/Resolved]
  - Bradycardia [Recovered/Resolved]
  - Hypotension [Recovered/Resolved]
  - Tachycardia [Recovered/Resolved]
